FAERS Safety Report 8413564-8 (Version None)
Quarter: 2012Q2

REPORT INFORMATION
  Report Type: 
  Country: None (occurrence: None)
  Receive Date: 20120605
  Receipt Date: 20120521
  Transmission Date: 20120825
  Serious: Yes (Other)
  Sender: FDA-Public Use
  Company Number: US-ROCHE-1074979

PATIENT
  Sex: Female

DRUGS (7)
  1. HERCEPTIN [Suspect]
     Dosage: FOR 23 WEEKS
     Route: 042
  2. AVASTIN [Suspect]
     Indication: BREAST CANCER
     Dosage: FOR 23 WEEKS
     Route: 042
  3. HERCEPTIN [Suspect]
     Indication: BREAST CANCER
     Dosage: LOADING DOSE
     Route: 042
  4. HERCEPTIN [Suspect]
     Dosage: TOTAL 54 WEEKS
     Route: 042
  5. PACLITAXEL [Suspect]
     Indication: BREAST CANCER
     Dosage: DAYS 1, 8 AND 15
     Route: 042
  6. AVASTIN [Suspect]
     Dosage: TOTAL 54 WEEKS
     Route: 042
  7. CARBOPLATIN [Suspect]
     Indication: BREAST CANCER
     Dosage: AUC=6 FOR 6 CYCLES
     Route: 042

REACTIONS (12)
  - NEUTROPENIA [None]
  - INFECTION [None]
  - VOMITING [None]
  - EJECTION FRACTION DECREASED [None]
  - HYPERGLYCAEMIA [None]
  - WOUND DEHISCENCE [None]
  - NAUSEA [None]
  - PROTEINURIA [None]
  - THROMBOCYTOPENIA [None]
  - HYPERTENSION [None]
  - BLOOD CREATININE INCREASED [None]
  - PAIN [None]
